FAERS Safety Report 7320983-X (Version None)
Quarter: 2011Q1

REPORT INFORMATION
  Report Type: 
  Country: None (occurrence: None)
  Receive Date: 20110228
  Receipt Date: 20110214
  Transmission Date: 20110831
  Serious: Yes (Other)
  Sender: FDA-Public Use
  Company Number: HR-ROCHE-761727

PATIENT
  Age: 55 Year
  Sex: Male

DRUGS (2)
  1. PEGINTERFERON ALFA-2A [Suspect]
     Dosage: TOTAL 8 WEEKS
     Route: 065
  2. EPOGEN [Concomitant]
     Dosage: DOSE 8,000 IU
     Route: 065

REACTIONS (4)
  - MOTION SICKNESS [None]
  - DRUG INEFFECTIVE [None]
  - ARTHRALGIA [None]
  - RECTAL HAEMORRHAGE [None]
